APPROVED DRUG PRODUCT: EXEMESTANE
Active Ingredient: EXEMESTANE
Strength: 25MG
Dosage Form/Route: TABLET;ORAL
Application: A210323 | Product #001 | TE Code: AB
Applicant: CIPLA LTD
Approved: Apr 27, 2018 | RLD: No | RS: No | Type: RX